FAERS Safety Report 7642980-7 (Version None)
Quarter: 2011Q3

REPORT INFORMATION
  Report Type: 
  Country: None (occurrence: None)
  Receive Date: 20110728
  Receipt Date: 20110718
  Transmission Date: 20111222
  Serious: Yes (Death, Other)
  Sender: FDA-Public Use
  Company Number: DE-GENENTECH-321919

PATIENT

DRUGS (1)
  1. RITUXIMAB [Suspect]
     Indication: AUTOIMMUNE DISORDER
     Dosage: UNK
     Route: 065

REACTIONS (7)
  - MENINGITIS MENINGOCOCCAL [None]
  - INFUSION RELATED REACTION [None]
  - INFECTION [None]
  - GASTROINTESTINAL INFECTION [None]
  - HERPES ZOSTER [None]
  - DEATH [None]
  - OESOPHAGEAL CANDIDIASIS [None]
